FAERS Safety Report 25258889 (Version 1)
Quarter: 2025Q2

REPORT INFORMATION
  Report Type: Report from Study
  Country: US (occurrence: US)
  Receive Date: 20250501
  Receipt Date: 20250501
  Transmission Date: 20250716
  Serious: Yes (Other)
  Sender: ABBVIE
  Company Number: US-ABBVIE-6154057

PATIENT
  Age: 73 Year
  Sex: Male
  Weight: 92.99 kg

DRUGS (3)
  1. IMBRUVICA [Suspect]
     Active Substance: IBRUTINIB
     Indication: Chronic lymphocytic leukaemia
     Route: 048
     Dates: start: 20160727, end: 201611
  2. IMBRUVICA [Suspect]
     Active Substance: IBRUTINIB
     Indication: Chronic lymphocytic leukaemia
     Route: 048
     Dates: start: 201611
  3. LEVOTHYROXINE [Concomitant]
     Active Substance: LEVOTHYROXINE
     Indication: Product used for unknown indication
     Dosage: 50 MCG
     Dates: start: 2005

REACTIONS (8)
  - Migraine [Unknown]
  - Nasopharyngitis [Unknown]
  - Back disorder [Unknown]
  - Arthralgia [Unknown]
  - Squamous cell carcinoma [Unknown]
  - Headache [Unknown]
  - Basal cell carcinoma [Unknown]
  - Atrial fibrillation [Unknown]

NARRATIVE: CASE EVENT DATE: 20161001
